FAERS Safety Report 5175420-0 (Version None)
Quarter: 2006Q4

REPORT INFORMATION
  Report Type: 
  Country: None (occurrence: None)
  Receive Date: 20061212
  Receipt Date: 20061212
  Transmission Date: 20070319
  Serious: No
  Sender: FDA-Public Use
  Company Number: None

PATIENT

DRUGS (7)
  1. MIDAZOLAM HCL [Suspect]
     Dosage: INJECTABLE
  2. DEMEROL [Suspect]
     Dosage: NJECTABLE, SEE IMAGE
  3. DEMEROL [Suspect]
     Dosage: INJECTABLE
  4. DEMEROL [Suspect]
     Dosage: INJECTABLE
  5. MORPHINE SULFATE [Suspect]
     Dosage: INJECTABLE
  6. MORPHINE SULFATE [Suspect]
     Dosage: INJECTABLE
  7. TRIMETHOBENZAMIDE HYDROCHLORIDE [Suspect]
     Dosage: INJECTABLE

REACTIONS (1)
  - MEDICATION ERROR [None]
